FAERS Safety Report 8320826-1 (Version None)
Quarter: 2012Q2

REPORT INFORMATION
  Report Type: 
  Country: None (occurrence: None)
  Receive Date: 20120430
  Receipt Date: 20120417
  Transmission Date: 20120825
  Serious: Yes (Other)
  Sender: FDA-Public Use
  Company Number: PHHY2011BR76052

PATIENT
  Sex: Female
  Weight: 89 kg

DRUGS (5)
  1. FORADIL [Suspect]
     Indication: CHRONIC OBSTRUCTIVE PULMONARY DISEASE
     Dosage: UNK,1 INHALATION EACH 12 HOURS
  2. ONBREZ [Concomitant]
  3. SPIRIVA [Concomitant]
     Indication: CHRONIC OBSTRUCTIVE PULMONARY DISEASE
  4. FORADIL [Suspect]
  5. FORMOTEROL FUMARATE [Suspect]
     Indication: CHRONIC OBSTRUCTIVE PULMONARY DISEASE
     Dates: end: 20120201

REACTIONS (13)
  - DIVERTICULITIS [None]
  - GAIT DISTURBANCE [None]
  - BACK PAIN [None]
  - COUGH [None]
  - SOMNOLENCE [None]
  - FEELING ABNORMAL [None]
  - HYPOTHYROIDISM [None]
  - MUSCLE SPASMS [None]
  - DYSPNOEA [None]
  - NECK PAIN [None]
  - GASTRITIS [None]
  - INSOMNIA [None]
  - FATIGUE [None]
